FAERS Safety Report 10496003 (Version 2)
Quarter: 2014Q4

REPORT INFORMATION
  Report Type: Spontaneous
  Country: GB (occurrence: GB)
  Receive Date: 20141003
  Receipt Date: 20141003
  Transmission Date: 20150528
  Serious: Yes (Death, Other)
  Sender: FDA-Public Use
  Company Number: CHPA2014GB009890

PATIENT
  Sex: Male

DRUGS (3)
  1. SCOPODERM TTS [Suspect]
     Active Substance: SCOPOLAMINE
     Indication: INCORRECT DOSE ADMINISTERED
  2. SCOPODERM TTS [Suspect]
     Active Substance: SCOPOLAMINE
     Indication: OFF LABEL USE
     Dosage: 2 DF, UNK
     Route: 062
  3. SCOPODERM TTS [Suspect]
     Active Substance: SCOPOLAMINE
     Indication: SALIVARY HYPERSECRETION
     Dosage: 1 DF,
     Route: 062

REACTIONS (2)
  - Somnolence [Unknown]
  - Death [Fatal]
